FAERS Safety Report 15706799 (Version 2)
Quarter: 2018Q4

REPORT INFORMATION
  Report Type: Report from Study
  Country: US (occurrence: US)
  Receive Date: 20181210
  Receipt Date: 20181227
  Transmission Date: 20190205
  Serious: Yes (Hospitalization)
  Sender: FDA-Public Use
  Company Number: US-ACTELION-A-US2017-154189

PATIENT
  Age: 71 Year
  Sex: Female
  Weight: 65.76 kg

DRUGS (19)
  1. NEXIUM [Concomitant]
     Active Substance: ESOMEPRAZOLE MAGNESIUM
     Dosage: 40 MG, QD PRN
  2. XANAX [Concomitant]
     Active Substance: ALPRAZOLAM
     Dosage: 0.25 MG, TID
  3. MELATONIN [Concomitant]
     Active Substance: MELATONIN
  4. VITAMIN E [Concomitant]
     Active Substance: .ALPHA.-TOCOPHEROL
  5. METOPROLOL. [Concomitant]
     Active Substance: METOPROLOL
     Dosage: 50 MG, QD
     Dates: start: 20170310
  6. TRAMADOL. [Concomitant]
     Active Substance: TRAMADOL
     Dosage: PRN
  7. NIFEDIPINE. [Concomitant]
     Active Substance: NIFEDIPINE
  8. XARELTO [Concomitant]
     Active Substance: RIVAROXABAN
  9. VITAMIN B12 [Concomitant]
     Active Substance: CYANOCOBALAMIN
  10. FUROSEMIDE. [Concomitant]
     Active Substance: FUROSEMIDE
     Dosage: 40 MG, QD
     Dates: start: 20170310
  11. OPSUMIT [Suspect]
     Active Substance: MACITENTAN
     Indication: PULMONARY ARTERIAL HYPERTENSION
     Dosage: 10 MG, QD
     Route: 048
     Dates: start: 20170310
  12. SILDENAFIL. [Concomitant]
     Active Substance: SILDENAFIL
     Dosage: 20 MG, UNK
  13. TYLENOL [Concomitant]
     Active Substance: ACETAMINOPHEN
     Dosage: 325 MG, Q6HRS
  14. VITAMINS NOS [Concomitant]
     Active Substance: VITAMINS
  15. ASPIRIN. [Concomitant]
     Active Substance: ASPIRIN
     Dosage: 81 MG, QD
     Dates: start: 20170310
  16. SILDENAFIL. [Concomitant]
     Active Substance: SILDENAFIL
     Dosage: UNK, BID
  17. SIMVASTATIN. [Concomitant]
     Active Substance: SIMVASTATIN
     Dosage: 20 MG, TID
     Dates: start: 20170613
  18. SILDENAFIL. [Concomitant]
     Active Substance: SILDENAFIL
     Dosage: UNK, TID
  19. DULCOLAX NOS [Concomitant]
     Active Substance: BISACODYL OR DOCUSATE SODIUM
     Dosage: 5 MG, QD

REACTIONS (9)
  - Fatigue [Unknown]
  - Atrial fibrillation [Recovering/Resolving]
  - Limb injury [Unknown]
  - Oropharyngeal pain [Unknown]
  - Infection [Unknown]
  - Cough [Unknown]
  - Nasopharyngitis [Unknown]
  - Heart rate increased [Recovering/Resolving]
  - Dizziness [Unknown]
